FAERS Safety Report 5348398-4 (Version None)
Quarter: 2007Q2

REPORT INFORMATION
  Report Type: 
  Country: None (occurrence: None)
  Receive Date: 20070606
  Receipt Date: 20070115
  Transmission Date: 20071010
  Serious: Yes (Hospitalization)
  Sender: FDA-Public Use
  Company Number: GB-PFIZER INC-2006146949

PATIENT
  Sex: Male
  Weight: 76.6 kg

DRUGS (3)
  1. SU-011,248 [Suspect]
     Indication: RENAL CELL CARCINOMA STAGE UNSPECIFIED
     Route: 048
  2. SU-011,248 [Suspect]
     Route: 048
  3. LANSOPRAZOLE [Concomitant]

REACTIONS (4)
  - HYPERCALCAEMIA [None]
  - HYPOTHYROIDISM [None]
  - METASTASES TO CENTRAL NERVOUS SYSTEM [None]
  - VISION BLURRED [None]
